FAERS Safety Report 25588757 (Version 1)
Quarter: 2025Q3

REPORT INFORMATION
  Report Type: Spontaneous
  Country: US (occurrence: US)
  Receive Date: 20250722
  Receipt Date: 20250722
  Transmission Date: 20251021
  Serious: Yes (Hospitalization, Other)
  Sender: BLUEPRINT MEDICINES
  Company Number: US-Blueprint Medicines Corporation-2025-AER-01535

PATIENT
  Age: 56 Year
  Sex: Female

DRUGS (1)
  1. AYVAKIT [Suspect]
     Active Substance: AVAPRITINIB
     Indication: Systemic mastocytosis
     Route: 065
     Dates: start: 20240331

REACTIONS (5)
  - Anaphylactic reaction [Unknown]
  - Fatigue [Recovering/Resolving]
  - Muscle fatigue [Recovering/Resolving]
  - Alopecia [Unknown]
  - Hypertension [Unknown]

NARRATIVE: CASE EVENT DATE: 20250601
